FAERS Safety Report 8156230-9 (Version None)
Quarter: 2012Q1

REPORT INFORMATION
  Report Type: 
  Country: None (occurrence: None)
  Receive Date: 20120222
  Receipt Date: 20120217
  Transmission Date: 20120608
  Serious: Yes (Hospitalization)
  Sender: FDA-Public Use
  Company Number: US-PFIZER INC-2012043501

PATIENT
  Sex: Male
  Weight: 103 kg

DRUGS (3)
  1. SUTENT [Suspect]
     Indication: RENAL CELL CARCINOMA STAGE IV
     Dosage: 15 MG, DAILY
     Dates: start: 20070101, end: 20070101
  2. PRILOSEC [Concomitant]
     Dosage: 40 MG, DAILY
  3. NEURONTIN [Concomitant]
     Dosage: 600 MG, 3X/DAY

REACTIONS (1)
  - GASTROINTESTINAL DISORDER [None]
